FAERS Safety Report 19139779 (Version 4)
Quarter: 2021Q2

REPORT INFORMATION
  Report Type: Report from Study
  Country: None (occurrence: US)
  Receive Date: 20210415
  Receipt Date: 20210514
  Transmission Date: 20210717
  Serious: Yes (Hospitalization, Other)
  Sender: FDA-Public Use
  Company Number: US-ABBVIE-21K-163-3856968-00

PATIENT
  Age: 47 Year
  Sex: Male
  Weight: 108.05 kg

DRUGS (3)
  1. HUMIRA [Suspect]
     Active Substance: ADALIMUMAB
     Dosage: CF
     Route: 058
     Dates: start: 2020, end: 202103
  2. HUMIRA [Suspect]
     Active Substance: ADALIMUMAB
     Indication: ANKYLOSING SPONDYLITIS
     Dosage: CF
     Route: 058
     Dates: start: 2019, end: 2020
  3. IRON [Concomitant]
     Active Substance: IRON
     Indication: PRODUCT USED FOR UNKNOWN INDICATION

REACTIONS (7)
  - Scar [Unknown]
  - Anaemia [Not Recovered/Not Resolved]
  - Blood glucose increased [Recovering/Resolving]
  - Meniscus injury [Recovering/Resolving]
  - Red blood cell count decreased [Unknown]
  - Therapeutic product effect incomplete [Unknown]
  - Pain [Unknown]

NARRATIVE: CASE EVENT DATE: 20200406
